FAERS Safety Report 22925961 (Version 5)
Quarter: 2024Q1

REPORT INFORMATION
  Report Type: Report from Study
  Country: US (occurrence: US)
  Receive Date: 20230908
  Receipt Date: 20240122
  Transmission Date: 20240409
  Serious: Yes (Other)
  Sender: FDA-Public Use
  Company Number: US-002147023-NVSC2023US194751

PATIENT
  Age: 91 Year
  Sex: Female

DRUGS (1)
  1. ENTRESTO [Suspect]
     Active Substance: SACUBITRIL\VALSARTAN
     Indication: Product used for unknown indication
     Dosage: 1 DOSAGE FORM, BID
     Route: 065
     Dates: start: 202303

REACTIONS (10)
  - Cerebrovascular accident [Unknown]
  - Loss of consciousness [Unknown]
  - Visual impairment [Unknown]
  - Concomitant disease aggravated [Unknown]
  - Urinary incontinence [Not Recovered/Not Resolved]
  - Weight increased [Unknown]
  - Scratch [Unknown]
  - Product dose omission issue [Unknown]
  - Asthenia [Unknown]
  - Drug ineffective [Unknown]

NARRATIVE: CASE EVENT DATE: 20231129
